FAERS Safety Report 5276906-0 (Version None)
Quarter: 2007Q1

REPORT INFORMATION
  Report Type: 
  Country: None (occurrence: None)
  Receive Date: 20070327
  Receipt Date: 20070319
  Transmission Date: 20070707
  Serious: Yes (Death)
  Sender: FDA-Public Use
  Company Number: PK-BAYER-200711598GDS

PATIENT
  Sex: Male

DRUGS (3)
  1. CIPROFLOXACIN HYDROCHLORIDE [Suspect]
     Indication: URINARY TRACT INFECTION
     Route: 042
  2. CIPROFLOXACIN HYDROCHLORIDE [Suspect]
     Route: 048
  3. TAZOCIN [Concomitant]
     Indication: DRUG USE FOR UNKNOWN INDICATION
     Route: 042

REACTIONS (1)
  - STEVENS-JOHNSON SYNDROME [None]
